FAERS Safety Report 10550130 (Version 2)
Quarter: 2014Q4

REPORT INFORMATION
  Report Type: Report from Study
  Country: US (occurrence: US)
  Receive Date: 20141028
  Receipt Date: 20141028
  Transmission Date: 20150529
  Serious: Yes (Hospitalization)
  Sender: FDA-Public Use
  Company Number: US-ACTELION-A-NJ2014-105430

PATIENT
  Age: 54 Year
  Sex: Male

DRUGS (5)
  1. REVATIO [Concomitant]
     Active Substance: SILDENAFIL CITRATE
  2. FLOLAN [Concomitant]
     Active Substance: EPOPROSTENOL SODIUM
  3. VELETRI [Suspect]
     Active Substance: EPOPROSTENOL
     Indication: PULMONARY ARTERIAL HYPERTENSION
     Dosage: 17 NG/KG, PER MIN
     Route: 042
     Dates: start: 20121113
  4. LETAIRIS [Concomitant]
     Active Substance: AMBRISENTAN
  5. COUMADIN [Concomitant]
     Active Substance: WARFARIN SODIUM

REACTIONS (4)
  - Dyspnoea [Unknown]
  - Device related infection [Unknown]
  - Acute respiratory failure [Unknown]
  - Asthma [Unknown]

NARRATIVE: CASE EVENT DATE: 201409
